FAERS Safety Report 11252104 (Version 2)
Quarter: 2015Q3

REPORT INFORMATION
  Report Type: Spontaneous
  Country: US (occurrence: US)
  Receive Date: 20150708
  Receipt Date: 20150708
  Transmission Date: 20151125
  Serious: No
  Sender: FDA-Public Use
  Company Number: US-ELI_LILLY_AND_COMPANY-US201003006265

PATIENT
  Sex: Male

DRUGS (7)
  1. LITHIUM. [Concomitant]
     Active Substance: LITHIUM
     Dosage: 600 MG, UNK
  2. LITHIUM. [Concomitant]
     Active Substance: LITHIUM
     Dosage: 300 MG, UNK
  3. SYMBYAX [Suspect]
     Active Substance: FLUOXETINE HYDROCHLORIDE\OLANZAPINE
     Indication: DEPRESSION
     Dosage: UNK, UNK
     Dates: start: 2011
  4. SYMBYAX [Suspect]
     Active Substance: FLUOXETINE HYDROCHLORIDE\OLANZAPINE
     Dosage: UNK
  5. WELLBUTRIN [Concomitant]
     Active Substance: BUPROPION HYDROCHLORIDE
     Dosage: 300 MG, UNK
  6. LITHIUM. [Concomitant]
     Active Substance: LITHIUM
     Dosage: 150 MG, UNK
  7. PROZAC [Suspect]
     Active Substance: FLUOXETINE HYDROCHLORIDE
     Indication: DEPRESSION
     Dosage: UNK, UNKNOWN
     Route: 065
     Dates: start: 1995, end: 1997

REACTIONS (16)
  - Mental disorder [Unknown]
  - Malaise [Unknown]
  - Sleep disorder [Unknown]
  - Hearing impaired [Unknown]
  - Headache [Unknown]
  - Memory impairment [Unknown]
  - Drug ineffective [Unknown]
  - Pollakiuria [Recovering/Resolving]
  - Urinary incontinence [Recovered/Resolved]
  - Fear [Unknown]
  - Balance disorder [Unknown]
  - Blood glucose fluctuation [Unknown]
  - Sexual inhibition [Unknown]
  - Expired product administered [Unknown]
  - Abnormal behaviour [Unknown]
  - Adverse event [Unknown]

NARRATIVE: CASE EVENT DATE: 1997
